FAERS Safety Report 14031083 (Version 1)
Quarter: 2017Q4

REPORT INFORMATION
  Report Type: Spontaneous
  Country: US (occurrence: US)
  Receive Date: 20171002
  Receipt Date: 20171002
  Transmission Date: 20180321
  Serious: Yes (Disabling)
  Sender: FDA-Public Use
  Company Number: US-GEHC-2017CSU003017

PATIENT
  Age: 55 Year
  Sex: Female

DRUGS (1)
  1. GADOLINIUM (UNSPECIFIED) [Suspect]
     Active Substance: GADOLINIUM
     Indication: NECK INJURY
     Dosage: UNK, SINGLE
     Route: 065
     Dates: start: 2006, end: 2006

REACTIONS (8)
  - Cognitive disorder [Unknown]
  - Gait disturbance [Unknown]
  - Blister [Unknown]
  - Burning sensation [Unknown]
  - Seizure [Unknown]
  - Tremor [Unknown]
  - Rash erythematous [Unknown]
  - Muscular weakness [Unknown]

NARRATIVE: CASE EVENT DATE: 2006
